FAERS Safety Report 7592168-3 (Version None)
Quarter: 2011Q3

REPORT INFORMATION
  Report Type: 
  Country: None (occurrence: None)
  Receive Date: 20110705
  Receipt Date: 20110705
  Transmission Date: 20111222
  Serious: Yes (Other)
  Sender: FDA-Public Use
  Company Number: None

PATIENT
  Sex: Male
  Weight: 90.7194 kg

DRUGS (1)
  1. EFFEXOR [Suspect]
     Indication: DEPRESSION
     Dosage: 150 MG ONCE A DAY PO
     Route: 048
     Dates: start: 20070901, end: 20090115

REACTIONS (7)
  - PARAESTHESIA [None]
  - ANGER [None]
  - DYSPHORIA [None]
  - MUSCLE TWITCHING [None]
  - WITHDRAWAL SYNDROME [None]
  - AGITATION [None]
  - TINNITUS [None]
